FAERS Safety Report 5146197-X (Version None)
Quarter: 2006Q4

REPORT INFORMATION
  Report Type: 
  Country: None (occurrence: None)
  Receive Date: 20061106
  Receipt Date: 20061106
  Transmission Date: 20070319
  Serious: Yes (Hospitalization, Other)
  Sender: FDA-Public Use
  Company Number: None

PATIENT
  Age: 73 Year
  Sex: Male
  Weight: 78.9259 kg

DRUGS (1)
  1. LAMICTAL [Suspect]
     Indication: DEPRESSION
     Dosage: 50 MG DAILY PO
     Route: 048
     Dates: start: 20060810, end: 20060828

REACTIONS (8)
  - ASTHENIA [None]
  - DIZZINESS [None]
  - DYSKINESIA [None]
  - GASTROINTESTINAL HAEMORRHAGE [None]
  - HAEMATOCHEZIA [None]
  - HAEMOGLOBIN DECREASED [None]
  - HYPERSOMNIA [None]
  - TREMOR [None]
